FAERS Safety Report 18935038 (Version 4)
Quarter: 2021Q3

REPORT INFORMATION
  Report Type: Spontaneous
  Country: US (occurrence: US)
  Receive Date: 20210224
  Receipt Date: 20210820
  Transmission Date: 20211014
  Serious: No
  Sender: FDA-Public Use
  Company Number: US-PFIZER INC-2021179406

PATIENT
  Age: 11 Year
  Sex: Male
  Weight: 36.74 kg

DRUGS (3)
  1. UNITHROID [Concomitant]
     Active Substance: LEVOTHYROXINE SODIUM
     Indication: HYPOTHYROIDISM
     Dosage: 25 UG, DAILY (25MCG, BY MOUTH, DAILY AT 7:00AM)
     Route: 048
  2. GENOTROPIN [Suspect]
     Active Substance: SOMATROPIN
     Indication: BLOOD GROWTH HORMONE
     Dosage: 1.5 MG, 1X/DAY (1.5MG INJECTED ONCE A DAY AT 9PM )
     Dates: start: 201906
  3. UNITHROID [Concomitant]
     Active Substance: LEVOTHYROXINE SODIUM
     Dosage: 0.375 MG, 1X/DAY
     Route: 048

REACTIONS (3)
  - Device mechanical issue [Unknown]
  - Drug dose omission by device [Unknown]
  - Contusion [Recovering/Resolving]
